FAERS Safety Report 23875104 (Version 1)
Quarter: 2024Q2

REPORT INFORMATION
  Report Type: Spontaneous
  Country: US (occurrence: None)
  Receive Date: 20240520
  Receipt Date: 20240520
  Transmission Date: 20240716
  Serious: Yes (Hospitalization)
  Sender: FDA-Public Use
  Company Number: None

PATIENT
  Age: 85 Year
  Sex: Male

DRUGS (1)
  1. METOPROLOL SUCCINATE [Suspect]
     Active Substance: METOPROLOL SUCCINATE
     Indication: Supraventricular tachycardia
     Dosage: 50 MG EVERY DAY PO?
     Route: 048
     Dates: start: 20201219

REACTIONS (2)
  - Palpitations [None]
  - Confusional state [None]

NARRATIVE: CASE EVENT DATE: 20240513
